FAERS Safety Report 21942574 (Version 1)
Quarter: 2023Q1

REPORT INFORMATION
  Report Type: Report from Study
  Country: US (occurrence: US)
  Receive Date: 20230202
  Receipt Date: 20230202
  Transmission Date: 20230418
  Serious: No
  Sender: FDA-Public Use
  Company Number: US-EXELIXIS-CABO-22058220

PATIENT
  Sex: Female

DRUGS (12)
  1. CABOMETYX [Suspect]
     Active Substance: CABOZANTINIB S-MALATE
     Indication: Renal cell carcinoma
     Dosage: 20 MG, QD
     Dates: start: 20221006
  2. CABOMETYX [Suspect]
     Active Substance: CABOZANTINIB S-MALATE
     Dosage: 40 MG
     Dates: start: 20221031
  3. CABOMETYX [Suspect]
     Active Substance: CABOZANTINIB S-MALATE
     Dosage: 40 MG, QOD
  4. CABOMETYX [Suspect]
     Active Substance: CABOZANTINIB S-MALATE
     Dosage: 20 MG, QD
  5. OPDIVO [Suspect]
     Active Substance: NIVOLUMAB
     Indication: Renal cell carcinoma
     Dosage: UNK, Q4WEEKS
     Dates: start: 20221006
  6. HYDRALAZINE [Concomitant]
     Active Substance: HYDRALAZINE HYDROCHLORIDE
     Dosage: UNK
  7. NIFEDIPINE [Concomitant]
     Active Substance: NIFEDIPINE
     Dosage: UNK
  8. ONDANSETRON [Concomitant]
     Active Substance: ONDANSETRON
     Dosage: UNK
  9. TYLENOL [Concomitant]
     Active Substance: ACETAMINOPHEN
     Dosage: UNK
  10. DOXAZOSIN [Concomitant]
     Active Substance: DOXAZOSIN MESYLATE
     Dosage: UNK
  11. MIRALAX [Concomitant]
     Active Substance: POLYETHYLENE GLYCOL 3350
     Dosage: UNK
  12. PROCHLORPERAZINE [Concomitant]
     Active Substance: PROCHLORPERAZINE
     Dosage: UNK

REACTIONS (16)
  - Rhinorrhoea [Recovering/Resolving]
  - Ear discomfort [Unknown]
  - Erythema [Recovering/Resolving]
  - Pain [Unknown]
  - Pruritus [Recovering/Resolving]
  - Fatigue [Unknown]
  - Dizziness [Unknown]
  - Headache [Unknown]
  - Nausea [Unknown]
  - Dysphonia [Unknown]
  - Constipation [Unknown]
  - Skin ulcer [Recovered/Resolved]
  - Blood pressure increased [Recovering/Resolving]
  - Injury [Unknown]
  - Haemorrhage [Unknown]
  - Inappropriate schedule of product administration [Unknown]
